FAERS Safety Report 16118136 (Version 5)
Quarter: 2020Q1

REPORT INFORMATION
  Report Type: Spontaneous
  Country: US (occurrence: US)
  Receive Date: 20190326
  Receipt Date: 20200212
  Transmission Date: 20200409
  Serious: Yes (Other)
  Sender: FDA-Public Use
  Company Number: US-ELI_LILLY_AND_COMPANY-US201903011584

PATIENT
  Age: 56 Year
  Sex: Female

DRUGS (9)
  1. HUMALOG [Suspect]
     Active Substance: INSULIN LISPRO
     Dosage: 11 INTERNATIONAL UNIT, BID (BREAKFAST AND LUNCH)
     Route: 058
  2. HUMALOG [Suspect]
     Active Substance: INSULIN LISPRO
     Indication: PRODUCT USED FOR UNKNOWN INDICATION
     Dosage: UNK UNK, UNKNOWN
     Route: 065
     Dates: start: 201811
  3. HUMALOG [Suspect]
     Active Substance: INSULIN LISPRO
     Dosage: 13 INTERNATIONAL UNIT, DAILY (DINNER)
     Route: 058
     Dates: start: 201811
  4. BASAGLAR [Suspect]
     Active Substance: INSULIN GLARGINE
     Indication: DIABETES MELLITUS
     Dosage: 65 INTERNATIONAL UNIT, DAILY
     Route: 058
     Dates: start: 201811
  5. TRULICITY [Suspect]
     Active Substance: DULAGLUTIDE
     Indication: DIABETES MELLITUS
     Dosage: 1.5 MG, WEEKLY (1/W)
     Route: 058
     Dates: start: 201811
  6. TRULICITY [Suspect]
     Active Substance: DULAGLUTIDE
     Dosage: 1.5 MG, WEEKLY (1/W)
     Route: 058
  7. BASAGLAR [Suspect]
     Active Substance: INSULIN GLARGINE
     Dosage: 65 INTERNATIONAL UNIT, DAILY
     Route: 058
  8. HUMALOG [Suspect]
     Active Substance: INSULIN LISPRO
     Dosage: 13 INTERNATIONAL UNIT, DAILY (DINNER)
     Route: 058
  9. HUMALOG [Suspect]
     Active Substance: INSULIN LISPRO
     Indication: DIABETES MELLITUS
     Dosage: 11 INTERNATIONAL UNIT, BID (BREAKFAST AND LUNCH)
     Route: 058
     Dates: start: 201811

REACTIONS (14)
  - Somatic delusion [Not Recovered/Not Resolved]
  - Stomatitis [Not Recovered/Not Resolved]
  - Fungal infection [Unknown]
  - Cerebral disorder [Unknown]
  - Mental impairment [Not Recovered/Not Resolved]
  - Large intestine infection [Unknown]
  - Feeling abnormal [Not Recovered/Not Resolved]
  - Infectious mononucleosis [Unknown]
  - Lyme disease [Not Recovered/Not Resolved]
  - Sepsis [Unknown]
  - Memory impairment [Not Recovered/Not Resolved]
  - Blood glucose increased [Not Recovered/Not Resolved]
  - Fatigue [Not Recovered/Not Resolved]
  - Visual impairment [Unknown]

NARRATIVE: CASE EVENT DATE: 20190513
